FAERS Safety Report 23433972 (Version 2)
Quarter: 2024Q1

REPORT INFORMATION
  Report Type: Spontaneous
  Country: JP (occurrence: JP)
  Receive Date: 20240123
  Receipt Date: 20240329
  Transmission Date: 20240409
  Serious: Yes (Death, Other)
  Sender: FDA-Public Use
  Company Number: JP-MSD-M2024-01142

PATIENT
  Age: 76 Year
  Sex: Female

DRUGS (1)
  1. KEYTRUDA [Suspect]
     Active Substance: PEMBROLIZUMAB
     Indication: Bladder transitional cell carcinoma
     Dosage: 200 MILLIGRAM, Q3W
     Route: 041
     Dates: start: 20180820, end: 20201001

REACTIONS (6)
  - Embolism venous [Unknown]
  - Malignant neoplasm progression [Fatal]
  - Cellulitis [Unknown]
  - Herpes zoster [Unknown]
  - Thyroid disorder [Unknown]
  - Nausea [Unknown]

NARRATIVE: CASE EVENT DATE: 20181010
